FAERS Safety Report 10172037 (Version 7)
Quarter: 2014Q2

REPORT INFORMATION
  Report Type: Report from Study
  Country: AR (occurrence: AR)
  Receive Date: 20140515
  Receipt Date: 20140607
  Transmission Date: 20141212
  Serious: Yes (Other)
  Sender: FDA-Public Use
  Company Number: PHHY2014AR050181

PATIENT
  Age: 22 Year
  Sex: Male

DRUGS (1)
  1. LAPENAX [Suspect]
     Indication: PSYCHOTIC DISORDER
     Dosage: UNK UKN, UNK
     Route: 048

REACTIONS (6)
  - Dehydration [Unknown]
  - Pharyngitis [Unknown]
  - Lower respiratory tract infection viral [Unknown]
  - Neutropenia [Unknown]
  - White blood cell count decreased [Unknown]
  - Agitation [Unknown]
